FAERS Safety Report 5648922-8 (Version None)
Quarter: 2008Q1

REPORT INFORMATION
  Report Type: 
  Country: None (occurrence: None)
  Receive Date: 20080304
  Receipt Date: 20080225
  Transmission Date: 20080703
  Serious: Yes (Hospitalization)
  Sender: FDA-Public Use
  Company Number: JP-MERCK-0802USA05727

PATIENT
  Age: 30 Year
  Sex: Female

DRUGS (4)
  1. NORFLOXIN [Suspect]
     Indication: NASOPHARYNGITIS
     Route: 065
     Dates: start: 20011111
  2. TRANEXAMIC ACID [Concomitant]
     Indication: NASOPHARYNGITIS
     Route: 065
  3. ACETAMINOPHEN [Concomitant]
     Indication: NASOPHARYNGITIS
     Route: 065
  4. IMIPENEM [Suspect]
     Indication: INFECTION PROPHYLAXIS
     Route: 065

REACTIONS (6)
  - HEPATIC FUNCTION ABNORMAL [None]
  - HYPERBILIRUBINAEMIA [None]
  - ILEUS [None]
  - PLEURISY [None]
  - SMALL INTESTINE ULCER [None]
  - TOXIC EPIDERMAL NECROLYSIS [None]
